FAERS Safety Report 5406688-0 (Version None)
Quarter: 2007Q3

REPORT INFORMATION
  Report Type: 
  Country: None (occurrence: None)
  Receive Date: 20070803
  Receipt Date: 20070803
  Transmission Date: 20080115
  Serious: No
  Sender: FDA-Public Use
  Company Number: None

PATIENT

DRUGS (5)
  1. BONIVA [Suspect]
     Indication: OSTEOPOROSIS
     Dosage: 3MG Q 3 MONTHS
     Dates: start: 20070221, end: 20070516
  2. PREVACID [Concomitant]
  3. VERAPAMIL [Concomitant]
  4. VIT D [Concomitant]
  5. M.V.I. [Concomitant]

REACTIONS (2)
  - BONE PAIN [None]
  - TOOTHACHE [None]
